FAERS Safety Report 6321842-1 (Version None)
Quarter: 2009Q3

REPORT INFORMATION
  Report Type: 
  Country: None (occurrence: None)
  Receive Date: 20090812
  Receipt Date: 20090731
  Transmission Date: 20100115
  Serious: Yes (Death, Other)
  Sender: FDA-Public Use
  Company Number: THYM-1001131

PATIENT
  Age: 2 Year
  Sex: Male

DRUGS (4)
  1. THYMOGLOBULIN [Suspect]
     Indication: ALLOGENIC BONE MARROW TRANSPLANTATION THERAPY
     Dosage: INTRAVENOUS
     Route: 042
  2. CYCLOSPORINE [Concomitant]
  3. STEROID (STEROID) [Concomitant]
  4. BUSULFAN AND CYCLOPHOSPHAMIDE (BUSULFAN AND CYCLOPHOSPHAMIDE) [Concomitant]

REACTIONS (2)
  - ACUTE GRAFT VERSUS HOST DISEASE [None]
  - EPSTEIN-BARR VIRUS ASSOCIATED LYMPHOPROLIFERATIVE DISORDER [None]
